FAERS Safety Report 9265782 (Version 1)
Quarter: 2013Q2

REPORT INFORMATION
  Report Type: Spontaneous
  Country: US (occurrence: US)
  Receive Date: 20130501
  Receipt Date: 20130501
  Transmission Date: 20140414
  Serious: Yes (Hospitalization)
  Sender: FDA-Public Use
  Company Number: US-GLAXOSMITHKLINE-A1021156A

PATIENT
  Sex: Male

DRUGS (2)
  1. CARVEDILOL [Suspect]
     Indication: PRODUCT USED FOR UNKNOWN INDICATION
     Dosage: 25MG TWICE PER DAY
     Route: 065
  2. UNSPECIFIED MEDICATION [Concomitant]

REACTIONS (16)
  - Atrioventricular block complete [Unknown]
  - Dementia Alzheimer^s type [Unknown]
  - Dementia [Unknown]
  - Cardiac pacemaker insertion [Unknown]
  - Amnesia [Not Recovered/Not Resolved]
  - Confusional state [Unknown]
  - Asthenia [Unknown]
  - Fatigue [Unknown]
  - Hyperhidrosis [Unknown]
  - Feeling hot [Unknown]
  - Heart rate abnormal [Unknown]
  - Drug hypersensitivity [Unknown]
  - Heart rate decreased [Unknown]
  - Bradycardia [Unknown]
  - Drug dispensing error [Unknown]
  - Incorrect dose administered [Unknown]
